FAERS Safety Report 25061121 (Version 2)
Quarter: 2025Q1

REPORT INFORMATION
  Report Type: Spontaneous
  Country: US (occurrence: US)
  Receive Date: 20250310
  Receipt Date: 20250331
  Transmission Date: 20250409
  Serious: Yes (Congenital Anomaly)
  Sender: ABBVIE
  Company Number: US-ABBVIE-6171587

PATIENT
  Sex: Male

DRUGS (1)
  1. SYNTHROID [Suspect]
     Active Substance: LEVOTHYROXINE SODIUM
     Indication: Maternal exposure timing unspecified
     Route: 064

REACTIONS (4)
  - Thyroid agenesis [Not Recovered/Not Resolved]
  - Large for dates baby [Unknown]
  - Foetal exposure during pregnancy [Unknown]
  - Apgar score abnormal [Unknown]

NARRATIVE: CASE EVENT DATE: 19920717
